FAERS Safety Report 15586966 (Version 1)
Quarter: 2018Q4

REPORT INFORMATION
  Report Type: Report from Study
  Country: US (occurrence: US)
  Receive Date: 20181105
  Receipt Date: 20181105
  Transmission Date: 20190205
  Serious: Yes (Death, Hospitalization, Other)
  Sender: FDA-Public Use
  Company Number: US-AMGEN-2013-1385

PATIENT
  Age: 74 Year
  Sex: Male
  Weight: 76.64 kg

DRUGS (2)
  1. CARFILZOMIB [Suspect]
     Active Substance: CARFILZOMIB
     Indication: PLASMA CELL MYELOMA
     Dosage: 45 MG/M2, PER CHEMO REGIM
     Route: 042
     Dates: start: 20130604
  2. DOXORUBICIN [Suspect]
     Active Substance: DOXORUBICIN
     Indication: PLASMA CELL MYELOMA
     Dosage: 30 MG/M2, PER CHEMO REGIM
     Route: 042
     Dates: start: 20130605

REACTIONS (4)
  - Dehydration [Unknown]
  - Systemic inflammatory response syndrome [Unknown]
  - Sepsis [Fatal]
  - Aortic stenosis [Unknown]

NARRATIVE: CASE EVENT DATE: 20130813
